FAERS Safety Report 8066920-4 (Version None)
Quarter: 2012Q1

REPORT INFORMATION
  Report Type: 
  Country: None (occurrence: None)
  Receive Date: 20120124
  Receipt Date: 20120119
  Transmission Date: 20120608
  Serious: Yes (Life-Threatening, Hospitalization)
  Sender: FDA-Public Use
  Company Number: PHHY2012DE005274

PATIENT
  Age: 54 Year
  Sex: Female

DRUGS (2)
  1. SANDIMMUNE [Suspect]
     Indication: DERMATITIS ATOPIC
     Dosage: 50 MG EVERY DAY
     Route: 048
     Dates: start: 20100601
  2. CHLORHEXIDINE GLUCONATE [Suspect]
     Indication: TOOTH ABSCESS

REACTIONS (3)
  - ASPHYXIA [None]
  - CIRCULATORY COLLAPSE [None]
  - PETIT MAL EPILEPSY [None]
